FAERS Safety Report 7717163-2 (Version None)
Quarter: 2011Q3

REPORT INFORMATION
  Report Type: 
  Country: None (occurrence: None)
  Receive Date: 20110826
  Receipt Date: 20110826
  Transmission Date: 20111222
  Serious: Yes (Other)
  Sender: FDA-Public Use
  Company Number: None

PATIENT
  Sex: Female
  Weight: 68 kg

DRUGS (1)
  1. VENOFER [Suspect]
     Indication: IRON DEFICIENCY ANAEMIA
     Dosage: 200 MG EVERY WEEK IVPB OVER 30 MIN
     Route: 042
     Dates: start: 20110804

REACTIONS (2)
  - INFUSION SITE PAIN [None]
  - INFUSION SITE HAEMATOMA [None]
